FAERS Safety Report 7833861-4 (Version None)
Quarter: 2011Q4

REPORT INFORMATION
  Report Type: 
  Country: None (occurrence: None)
  Receive Date: 20111024
  Receipt Date: 20111019
  Transmission Date: 20120403
  Serious: Yes (Other)
  Sender: FDA-Public Use
  Company Number: DE-GLAXOSMITHKLINE-D0073071A

PATIENT
  Age: 46 Year
  Sex: Male

DRUGS (4)
  1. LAMOTRIGINE [Suspect]
     Indication: EPILEPSY
     Dosage: 100MG TWICE PER DAY
     Route: 048
  2. TROBALT [Suspect]
     Indication: EPILEPSY
     Dosage: 150MG THREE TIMES PER DAY
     Route: 048
     Dates: start: 20110824
  3. MIRTAZAPINE [Suspect]
     Indication: EPILEPSY
     Dosage: 15MG PER DAY
     Route: 048
  4. KEPPRA [Suspect]
     Indication: EPILEPSY
     Dosage: 1000MG TWICE PER DAY
     Route: 048

REACTIONS (6)
  - DIZZINESS [None]
  - ANTICONVULSANT DRUG LEVEL ABOVE THERAPEUTIC [None]
  - VERTIGO [None]
  - HEADACHE [None]
  - ATAXIA [None]
  - THOUGHT BLOCKING [None]
